FAERS Safety Report 5370716-1 (Version None)
Quarter: 2007Q2

REPORT INFORMATION
  Report Type: 
  Country: None (occurrence: None)
  Receive Date: 20070614
  Receipt Date: 20070330
  Transmission Date: 20071010
  Serious: No
  Sender: FDA-Public Use
  Company Number: BDI-009323

PATIENT
  Age: 56 Year
  Sex: Female
  Weight: 70.45 kg

DRUGS (3)
  1. MULTIHANCE [Suspect]
     Indication: ARTERIAL STENOSIS
     Dosage: 40 ML ONCE IV
     Route: 042
     Dates: start: 20070330, end: 20070330
  2. MULTIHANCE [Suspect]
     Indication: ARTERIOGRAM RENAL
     Dosage: 40 ML ONCE IV
     Route: 042
     Dates: start: 20070330, end: 20070330
  3. MULTIHANCE [Suspect]
     Indication: NUCLEAR MAGNETIC RESONANCE IMAGING
     Dosage: 40 ML ONCE IV
     Route: 042
     Dates: start: 20070330, end: 20070330

REACTIONS (1)
  - NAUSEA [None]
